FAERS Safety Report 6125733-0 (Version None)
Quarter: 2009Q1

REPORT INFORMATION
  Report Type: 
  Country: None (occurrence: None)
  Receive Date: 20090320
  Receipt Date: 20090130
  Transmission Date: 20090719
  Serious: Yes (Death)
  Sender: FDA-Public Use
  Company Number: US-TYCO HEALTHCARE/MALLINCKRODT-T200900485

PATIENT
  Age: 42 Year
  Sex: Female

DRUGS (3)
  1. PAMELOR [Suspect]
     Route: 048
  2. DIPHENHYDRAMINE HCL [Suspect]
     Route: 048
  3. DIAZEPAM [Suspect]
     Route: 048

REACTIONS (4)
  - CARDIAC ARREST [None]
  - CARDIO-RESPIRATORY ARREST [None]
  - COMPLETED SUICIDE [None]
  - RESPIRATORY ARREST [None]
